FAERS Safety Report 4446432-7 (Version None)
Quarter: 2004Q3

REPORT INFORMATION
  Report Type: 
  Country: None (occurrence: None)
  Receive Date: 20040907
  Receipt Date: 20040825
  Transmission Date: 20050211
  Serious: Yes (Other)
  Sender: FDA-Public Use
  Company Number: 2004060294

PATIENT

DRUGS (7)
  1. NEURONTIN [Suspect]
     Indication: ILL-DEFINED DISORDER
  2. ULTRACET [Suspect]
     Indication: ILL-DEFINED DISORDER
  3. CARISOPRODOL [Suspect]
     Indication: ILL-DEFINED DISORDER
  4. SODIUM FLUORIDE (SODIUM FLUORIDE) [Suspect]
     Indication: ILL-DEFINED DISORDER
  5. ALL OTHER THERAPEUTICS PRODUCTS (ALL OTHER THERAPEUTIC PRODUCTS) [Suspect]
     Indication: ILL-DEFINED DISORDER
  6. PROPACET 100 [Suspect]
     Indication: ILL-DEFINED DISORDER
  7. MORPHINE [Concomitant]

REACTIONS (2)
  - NEUROPATHY PERIPHERAL [None]
  - PERIPHERAL OCCLUSIVE DISEASE [None]
